FAERS Safety Report 9876917 (Version 3)
Quarter: 2014Q1

REPORT INFORMATION
  Report Type: Spontaneous
  Country: JP (occurrence: JP)
  Receive Date: 20140206
  Receipt Date: 20140220
  Transmission Date: 20141002
  Serious: Yes (Hospitalization)
  Sender: FDA-Public Use
  Company Number: JP-AMGEN-JPNSP2013079387

PATIENT
  Age: 71 Year
  Sex: Male
  Weight: 54 kg

DRUGS (20)
  1. VECTIBIX [Suspect]
     Indication: RECTAL CANCER RECURRENT
     Dosage: 350 MG, Q2WK
     Route: 041
     Dates: start: 20121022, end: 20131127
  2. VECTIBIX [Suspect]
     Dosage: 350 MG, Q2WK
     Route: 041
     Dates: start: 20131218, end: 20131218
  3. VECTIBIX [Suspect]
     Dosage: 350 MG, Q2WK
     Route: 041
     Dates: start: 20140115
  4. BLOPRESS [Concomitant]
     Dosage: 12 MG, QD
     Route: 048
     Dates: start: 20130220, end: 20130625
  5. BLOPRESS [Concomitant]
     Dosage: 8 MG, QD
     Route: 048
     Dates: start: 20130626
  6. ELPLAT [Concomitant]
     Indication: RECTAL CANCER RECURRENT
     Dosage: 130 MG, Q2WK
     Route: 041
     Dates: start: 20121022, end: 20131127
  7. ELPLAT [Concomitant]
     Dosage: 130 MG, Q2WK
     Route: 041
     Dates: start: 20131218, end: 20131218
  8. ELPLAT [Concomitant]
     Dosage: 130 MG, Q2WK
     Route: 041
     Dates: start: 20140115
  9. 5-FU                               /00098801/ [Concomitant]
     Indication: RECTAL CANCER RECURRENT
     Dosage: 600 MG, Q2WK
     Route: 040
     Dates: start: 20121022, end: 20131127
  10. 5-FU                               /00098801/ [Concomitant]
     Dosage: 3800 MG, Q2WK
     Route: 041
     Dates: start: 20121022, end: 20131127
  11. 5-FU                               /00098801/ [Concomitant]
     Dosage: 600 MG, Q2WK
     Route: 040
     Dates: start: 20131218, end: 20131218
  12. 5-FU                               /00098801/ [Concomitant]
     Dosage: 3800 MG, Q2WK
     Route: 041
     Dates: start: 20131218, end: 20131218
  13. 5-FU                               /00098801/ [Concomitant]
     Dosage: 600 MG, Q2WK
     Route: 040
     Dates: start: 20140115
  14. 5-FU                               /00098801/ [Concomitant]
     Dosage: 3800 MG, Q2WK
     Route: 041
     Dates: start: 20140115
  15. LEVOFOLINATE [Concomitant]
     Indication: RECTAL CANCER RECURRENT
     Dosage: 300 MG, Q2WK
     Route: 041
     Dates: start: 20121022, end: 20131127
  16. LEVOFOLINATE [Concomitant]
     Dosage: 300 MG, Q2WK
     Route: 041
     Dates: start: 20131218, end: 20131218
  17. LEVOFOLINATE [Concomitant]
     Dosage: 300 MG, Q2WK
     Route: 041
     Dates: start: 20140115
  18. FERO-GRADUMET [Concomitant]
     Dosage: 105 MG, QD
     Route: 048
     Dates: start: 20121023
  19. CINAL [Concomitant]
     Dosage: 1 G, QD
     Route: 048
     Dates: start: 20121023
  20. AMLODIN [Concomitant]
     Dosage: 5 MG, QD
     Route: 048
     Dates: start: 20121015, end: 20130219

REACTIONS (2)
  - Pyelonephritis acute [Recovering/Resolving]
  - Hypomagnesaemia [Recovering/Resolving]
